FAERS Safety Report 6939388-6 (Version None)
Quarter: 2010Q3

REPORT INFORMATION
  Report Type: 
  Country: None (occurrence: None)
  Receive Date: 20100819
  Receipt Date: 20100811
  Transmission Date: 20110219
  Serious: Yes (Other)
  Sender: FDA-Public Use
  Company Number: 2010SP038925

PATIENT
  Age: 57 Year
  Sex: Male

DRUGS (3)
  1. SAPHRIS [Suspect]
     Indication: BIPOLAR DISORDER
     Dosage: 5 MG;HS;SL
     Route: 060
     Dates: start: 20100505, end: 20100601
  2. SEROQUEL [Concomitant]
  3. KLONOPIN [Concomitant]

REACTIONS (1)
  - ATRIAL FIBRILLATION [None]
